FAERS Safety Report 9838305 (Version 1)
Quarter: 2013Q4

REPORT INFORMATION
  Report Type: Spontaneous
  Country: US (occurrence: None)
  Receive Date: 20131205
  Receipt Date: 20131205
  Transmission Date: 20140711
  Serious: Yes (Other)
  Sender: FDA-Public Use
  Company Number: 163-POMAL-13082325

PATIENT
  Age: 66 Year
  Sex: Male

DRUGS (8)
  1. POMALYST (POMALIDOMIDE) (4 MILLIGRAM, CAPSULES) [Suspect]
     Indication: PLASMA CELL MYELOMA
     Dosage: 4 MG, 21 IN 28 D, PO
     Route: 048
     Dates: start: 20130408, end: 20130829
  2. ACYCLOVIR (ACICLOVIR) (ACICLOVIR) [Concomitant]
  3. LEVOTHYROXINE (LEVOTHYROXINE) [Concomitant]
  4. SIMVASTATIN (SIMVASTATIN) [Concomitant]
  5. METOP (METOPROLOL TARTRATE) [Concomitant]
  6. GLIPIZIDE (GLIPIZIDE) [Concomitant]
  7. NAPROXEN (NAPROXEN) [Concomitant]
  8. BACTRIM DS (BACTRIM) [Concomitant]

REACTIONS (3)
  - Deep vein thrombosis [None]
  - Pain [None]
  - Pulmonary embolism [None]
